FAERS Safety Report 14826166 (Version 1)
Quarter: 2018Q2

REPORT INFORMATION
  Report Type: Spontaneous
  Country: US (occurrence: US)
  Receive Date: 20180417
  Receipt Date: 20180417
  Transmission Date: 20180711
  Serious: No
  Sender: FDA-Public Use
  Company Number: None

PATIENT
  Age: 55 Year
  Sex: Female

DRUGS (4)
  1. CLOBETASOL [Concomitant]
     Active Substance: CLOBETASOL
  2. CALCIUM [Concomitant]
     Active Substance: CALCIUM
  3. DOVONEX [Concomitant]
     Active Substance: CALCIPOTRIENE
  4. HUMIRA [Suspect]
     Active Substance: ADALIMUMAB
     Indication: PSORIASIS
     Route: 058
     Dates: start: 20141111

REACTIONS (1)
  - Shoulder operation [None]

NARRATIVE: CASE EVENT DATE: 201803
